FAERS Safety Report 22073636 (Version 1)
Quarter: 2023Q1

REPORT INFORMATION
  Report Type: Spontaneous
  Country: US (occurrence: None)
  Receive Date: 20230307
  Receipt Date: 20230307
  Transmission Date: 20230417
  Serious: Yes (Death)
  Sender: FDA-Public Use
  Company Number: None

PATIENT
  Age: 59 Year
  Sex: Male
  Weight: 75.3 kg

DRUGS (14)
  1. ABIRATERONE ACETATE [Suspect]
     Active Substance: ABIRATERONE ACETATE
     Indication: Prostate cancer
     Dosage: FREQUENCY : DAILY;?
     Route: 048
  2. PREDNISONE [Concomitant]
     Active Substance: PREDNISONE
     Indication: Prostate cancer
     Dosage: FREQUENCY : TWICE A DAY;?
     Route: 048
  3. TAMSULOSIN [Concomitant]
  4. IBUPROFEN [Concomitant]
  5. TRAMADOL [Concomitant]
  6. SUMATRIPTAN [Concomitant]
  7. FLUTICASONE [Concomitant]
  8. DILTIAZEM [Concomitant]
  9. BUTALBITAL-APAP-CAFF-COD [Concomitant]
  10. BICALUTAMIDE [Concomitant]
  11. VITAMIN D3 [Concomitant]
  12. FLOVENT DISKUS [Concomitant]
  13. EXCEDRIN [Concomitant]
  14. ZOLOFT [Concomitant]

REACTIONS (1)
  - Death [None]
